FAERS Safety Report 24224031 (Version 1)
Quarter: 2024Q3

REPORT INFORMATION
  Report Type: Spontaneous
  Country: US (occurrence: US)
  Receive Date: 20240819
  Receipt Date: 20240819
  Transmission Date: 20241016
  Serious: Yes (Other)
  Sender: PFIZER
  Company Number: US-PFIZER INC-202400238437

PATIENT
  Sex: Female

DRUGS (2)
  1. IBRANCE [Suspect]
     Active Substance: PALBOCICLIB
     Dosage: 100 MG DAILY
  2. IBRANCE [Suspect]
     Active Substance: PALBOCICLIB
     Dosage: UNK
     Dates: start: 202408

REACTIONS (2)
  - Neutropenia [Unknown]
  - Myalgia [Unknown]
